FAERS Safety Report 13602944 (Version 3)
Quarter: 2018Q4

REPORT INFORMATION
  Report Type: Spontaneous
  Country: US (occurrence: US)
  Receive Date: 20170601
  Receipt Date: 20181106
  Transmission Date: 20190204
  Serious: Yes (Death, Other)
  Sender: FDA-Public Use
  Company Number: US-CELGENEUS-USA-2015055345

PATIENT

DRUGS (4)
  1. CARBOPLATIN. [Suspect]
     Active Substance: CARBOPLATIN
     Indication: NON-SMALL CELL LUNG CANCER
     Route: 065
  2. MPDL3280A (ATEZOLIZUMAB) [Suspect]
     Active Substance: ATEZOLIZUMAB
     Dosage: 800 MILLIGRAM
     Route: 041
  3. ABRAXANE [Suspect]
     Active Substance: PACLITAXEL
     Indication: NON-SMALL CELL LUNG CANCER
     Dosage: 124 MILLIGRAM/SQ. METER
     Route: 041
  4. MPDL3280A (ATEZOLIZUMAB) [Suspect]
     Active Substance: ATEZOLIZUMAB
     Indication: NON-SMALL CELL LUNG CANCER
     Dosage: 15 MILLIGRAM/KILOGRAM
     Route: 041

REACTIONS (23)
  - Pneumonitis [Unknown]
  - Neutropenia [Unknown]
  - Nausea [Unknown]
  - White blood cell count decreased [Unknown]
  - Peripheral sensory neuropathy [Unknown]
  - Aspartate aminotransferase increased [Unknown]
  - Asthenia [Unknown]
  - Colitis [Unknown]
  - Neuropathy peripheral [Unknown]
  - Bone pain [Unknown]
  - Autoimmune hepatitis [Fatal]
  - Diarrhoea [Unknown]
  - Paronychia [Unknown]
  - Type 1 diabetes mellitus [Unknown]
  - Anaemia [Unknown]
  - Constipation [Unknown]
  - Myalgia [Unknown]
  - Febrile neutropenia [Unknown]
  - Pneumonia [Recovered/Resolved]
  - Pneumonia mycoplasmal [Unknown]
  - Syncope [Unknown]
  - Fatigue [Unknown]
  - Thrombocytopenia [Unknown]
